FAERS Safety Report 4456055-1 (Version None)
Quarter: 2004Q3

REPORT INFORMATION
  Report Type: 
  Country: None (occurrence: None)
  Receive Date: 20040922
  Receipt Date: 20040907
  Transmission Date: 20050211
  Serious: Yes (Other)
  Sender: FDA-Public Use
  Company Number: PHEH2004US09632

PATIENT
  Age: 57 Year
  Sex: Female
  Weight: 87 kg

DRUGS (3)
  1. GLEEVEC [Suspect]
     Dosage: 400 MG, QD
     Route: 048
  2. GLEEVEC [Suspect]
     Dosage: 300 MG, QD
     Route: 048
  3. GLEEVEC [Suspect]
     Dosage: 200 MG, QD
     Route: 048

REACTIONS (4)
  - OEDEMA PERIPHERAL [None]
  - PERIORBITAL OEDEMA [None]
  - WEIGHT INCREASED [None]
  - WHITE BLOOD CELL COUNT INCREASED [None]
